FAERS Safety Report 17856919 (Version 2)
Quarter: 2020Q2

REPORT INFORMATION
  Report Type: Report from Study
  Country: US (occurrence: US)
  Receive Date: 20200603
  Receipt Date: 20200617
  Transmission Date: 20200714
  Serious: Yes (Other)
  Sender: FDA-Public Use
  Company Number: NVSC2020US152327

PATIENT
  Sex: Female

DRUGS (3)
  1. PIQRAY [Suspect]
     Active Substance: ALPELISIB
     Dosage: UNK
     Route: 048
  2. PIQRAY [Suspect]
     Active Substance: ALPELISIB
     Dosage: 150 MG
     Route: 048
  3. PIQRAY [Suspect]
     Active Substance: ALPELISIB
     Indication: PRODUCT USED FOR UNKNOWN INDICATION
     Dosage: UNK
     Route: 048

REACTIONS (12)
  - Hypotension [Unknown]
  - Asthenia [Unknown]
  - Incorrect dose administered [Recovered/Resolved with Sequelae]
  - Chills [Unknown]
  - Fatigue [Unknown]
  - Cardiac flutter [Unknown]
  - Dyspnoea [Unknown]
  - Heart rate irregular [Unknown]
  - Constipation [Unknown]
  - Anaemia [Unknown]
  - Dizziness [Unknown]
  - Ligament sprain [Unknown]
